FAERS Safety Report 7650151-3 (Version None)
Quarter: 2011Q3

REPORT INFORMATION
  Report Type: 
  Country: None (occurrence: None)
  Receive Date: 20110802
  Receipt Date: 20110722
  Transmission Date: 20111222
  Serious: Yes (Disabling, Other)
  Sender: FDA-Public Use
  Company Number: US-BAYER-2011-053592

PATIENT
  Sex: Male

DRUGS (3)
  1. BETASERON [Suspect]
     Indication: RELAPSING-REMITTING MULTIPLE SCLEROSIS
     Dosage: UNK
     Dates: start: 20020605, end: 20040601
  2. BETASERON [Suspect]
     Dosage: 6 MIU, QOD
     Route: 058
     Dates: start: 20110322
  3. IBUPROFEN [Concomitant]
     Indication: PRODUCT USED FOR UNKNOWN INDICATION

REACTIONS (6)
  - MULTIPLE SCLEROSIS RELAPSE [None]
  - WHEELCHAIR USER [None]
  - MULTIPLE SCLEROSIS [None]
  - HEADACHE [None]
  - WALKING AID USER [None]
  - NASAL CONGESTION [None]
